FAERS Safety Report 10038706 (Version 1)
Quarter: 2014Q1

REPORT INFORMATION
  Report Type: Report from Study
  Country: US (occurrence: US)
  Receive Date: 20140326
  Receipt Date: 20140326
  Transmission Date: 20141002
  Serious: Yes (Hospitalization)
  Sender: FDA-Public Use
  Company Number: US-ACTELION-A-US2014-96294

PATIENT
  Age: 45 Year
  Sex: Female

DRUGS (3)
  1. VELETRI [Suspect]
     Indication: COR PULMONALE CHRONIC
     Dosage: 20 NG/KG, PER MIN
     Route: 042
     Dates: start: 20100702
  2. TRACLEER [Suspect]
     Indication: PULMONARY ARTERIAL HYPERTENSION
     Dosage: UNK
     Route: 048
  3. WARFARIN [Concomitant]

REACTIONS (4)
  - Device issue [Unknown]
  - Catheter site related reaction [Unknown]
  - Blister [Unknown]
  - Hypersensitivity [Unknown]
